FAERS Safety Report 4279868-8 (Version None)
Quarter: 2004Q1

REPORT INFORMATION
  Report Type: 
  Country: None (occurrence: None)
  Receive Date: 20040126
  Receipt Date: 20040115
  Transmission Date: 20041129
  Serious: Yes (Life-Threatening)
  Sender: FDA-Public Use
  Company Number: 2003AP03395

PATIENT
  Age: 76 Year
  Sex: Female

DRUGS (8)
  1. ARIMIDEX [Suspect]
     Indication: BREAST CANCER
     Dosage: 1 MG DAILY PO
     Route: 048
     Dates: start: 20020601, end: 20030602
  2. ARIMIDEX [Suspect]
     Indication: BREAST CANCER
     Dosage: 1 MG DAILY PO
     Route: 048
     Dates: start: 20030714, end: 20030820
  3. LIPITOR [Suspect]
     Dosage: 10 MG DAILY PO
     Route: 048
  4. PANALDINE [Suspect]
     Dosage: 2 DF DAILY PO
     Route: 048
  5. GASTER [Suspect]
     Dosage: 20 MG DAILY PO
     Route: 048
  6. ROCALTROL [Concomitant]
  7. SELBEX [Concomitant]
  8. MAGNESIUM OXIDE [Concomitant]

REACTIONS (3)
  - ANAEMIA [None]
  - DEPRESSED LEVEL OF CONSCIOUSNESS [None]
  - PANCYTOPENIA [None]
